FAERS Safety Report 10191007 (Version 1)
Quarter: 2014Q2

REPORT INFORMATION
  Report Type: Spontaneous
  Country: CA (occurrence: CA)
  Receive Date: 20140523
  Receipt Date: 20140523
  Transmission Date: 20141212
  Serious: Yes (Other)
  Sender: FDA-Public Use
  Company Number: CA-AMGEN INC.-CANSP2014036738

PATIENT
  Sex: Female

DRUGS (2)
  1. PROLIA [Suspect]
     Indication: OSTEOPOROSIS POSTMENOPAUSAL
     Dosage: 60 MG, Q6MO
     Route: 058
     Dates: start: 20131123
  2. GRAVOL [Concomitant]
     Route: 065

REACTIONS (10)
  - Dizziness [Unknown]
  - Vertigo [Not Recovered/Not Resolved]
  - Dehydration [Unknown]
  - Balance disorder [Unknown]
  - Hypoaesthesia oral [Not Recovered/Not Resolved]
  - Vomiting [Recovered/Resolved]
  - Ear congestion [Not Recovered/Not Resolved]
  - Nausea [Unknown]
  - Disturbance in attention [Unknown]
  - Tinnitus [Unknown]
